APPROVED DRUG PRODUCT: OXALIPLATIN
Active Ingredient: OXALIPLATIN
Strength: 200MG/40ML (5MG/ML)
Dosage Form/Route: INJECTABLE;INTRAVENOUS
Application: A202922 | Product #003
Applicant: SUN PHARMACEUTICAL INDUSTRIES LTD
Approved: Feb 15, 2019 | RLD: No | RS: No | Type: DISCN